FAERS Safety Report 24086434 (Version 8)
Quarter: 2025Q2

REPORT INFORMATION
  Report Type: Report from Study
  Country: US (occurrence: US)
  Receive Date: 20240712
  Receipt Date: 20250627
  Transmission Date: 20250717
  Serious: Yes (Other)
  Sender: TAKEDA
  Company Number: US-TAKEDA-US202030146

PATIENT
  Age: 18 Year
  Sex: Male
  Weight: 61 kg

DRUGS (8)
  1. HUMAN IMMUNOGLOBULIN G [Suspect]
     Active Substance: HUMAN IMMUNOGLOBULIN G
     Indication: Primary immunodeficiency syndrome
     Dosage: 6 GRAM, 1/WEEK
  2. HUMAN IMMUNOGLOBULIN G [Suspect]
     Active Substance: HUMAN IMMUNOGLOBULIN G
     Indication: Immunodeficiency common variable
  3. HUMAN IMMUNOGLOBULIN G [Suspect]
     Active Substance: HUMAN IMMUNOGLOBULIN G
     Dosage: 6 GRAM, 1/WEEK
  4. ACETAMINOPHEN [Concomitant]
     Active Substance: ACETAMINOPHEN
  5. SINGULAIR [Concomitant]
     Active Substance: MONTELUKAST SODIUM
  6. LIDOCAINE [Concomitant]
     Active Substance: LIDOCAINE
  7. DIPHENHYDRAMINE HYDROCHLORIDE [Concomitant]
     Active Substance: DIPHENHYDRAMINE HYDROCHLORIDE
  8. DOXYCYCLINE HYCLATE [Concomitant]
     Active Substance: DOXYCYCLINE HYCLATE

REACTIONS (32)
  - Immune thrombocytopenia [Unknown]
  - Taste disorder [Unknown]
  - Urine abnormality [Unknown]
  - Liver function test increased [Unknown]
  - Product dose omission issue [Unknown]
  - Product distribution issue [Unknown]
  - Inappropriate schedule of product administration [Unknown]
  - Nasopharyngitis [Unknown]
  - Infusion site pain [Unknown]
  - Retching [Unknown]
  - Molluscum contagiosum [Unknown]
  - Tinea infection [Unknown]
  - Weight increased [Unknown]
  - Platelet count decreased [Unknown]
  - Ear infection [Unknown]
  - Skin disorder [Unknown]
  - COVID-19 [Not Recovered/Not Resolved]
  - Injection site scar [Unknown]
  - Illness [Unknown]
  - Lymphocyte count decreased [Unknown]
  - Splenomegaly [Unknown]
  - Joint dislocation [Unknown]
  - Product use issue [Unknown]
  - Insurance issue [Unknown]
  - Sinusitis [Unknown]
  - Injection site haemorrhage [Unknown]
  - Oropharyngeal pain [Unknown]
  - Chest pain [Unknown]
  - Anaemia [Unknown]
  - Pain in extremity [Unknown]
  - Pyrexia [Unknown]
  - Fatigue [Unknown]

NARRATIVE: CASE EVENT DATE: 20220801
